FAERS Safety Report 21374953 (Version 1)
Quarter: 2022Q3

REPORT INFORMATION
  Report Type: Spontaneous
  Country: NL (occurrence: NL)
  Receive Date: 20220926
  Receipt Date: 20220926
  Transmission Date: 20221027
  Serious: Yes (Death, Life-Threatening, Hospitalization, Other)
  Sender: FDA-Public Use
  Company Number: NL-STRIDES ARCOLAB LIMITED-2022SP012114

PATIENT
  Age: 70 Year
  Weight: 67 kg

DRUGS (5)
  1. METHOTREXATE [Suspect]
     Active Substance: METHOTREXATE
     Indication: Diffuse large B-cell lymphoma stage IV
     Dosage: 5300 MILLIGRAM (HIGH-DOSE)
     Route: 065
  2. DEXAMETHASONE [Suspect]
     Active Substance: DEXAMETHASONE
     Indication: Diffuse large B-cell lymphoma stage IV
     Dosage: 40 MILLIGRAM PER DAY (ON DAY 1 THROUGH DAY 4 (RDHAP REGIMEN))
     Route: 065
  3. CISPLATIN [Suspect]
     Active Substance: CISPLATIN
     Indication: Diffuse large B-cell lymphoma stage IV
     Dosage: 100 MILLIGRAM/SQ. METER, ON DAY 1 (RDHAP REGIMEN)
     Route: 065
  4. RITUXIMAB [Suspect]
     Active Substance: RITUXIMAB
     Indication: Diffuse large B-cell lymphoma stage IV
     Dosage: 375 MILLIGRAM/SQ. METER ON DAY 1 (RDHAP REGIMEN)
     Route: 065
  5. CYTARABINE [Suspect]
     Active Substance: CYTARABINE
     Indication: Diffuse large B-cell lymphoma stage IV
     Dosage: 2000 MILLIGRAM/SQ. METER, BID (ON DAY 2)
     Route: 065

REACTIONS (9)
  - Toxicity to various agents [Fatal]
  - Drug ineffective [Fatal]
  - Acute kidney injury [Unknown]
  - Respiratory failure [Unknown]
  - Inappropriate antidiuretic hormone secretion [Unknown]
  - Neutropenia [Unknown]
  - Deep vein thrombosis [Unknown]
  - Erysipelas [Unknown]
  - Off label use [Unknown]
